FAERS Safety Report 6819594-1 (Version None)
Quarter: 2010Q3

REPORT INFORMATION
  Report Type: 
  Country: None (occurrence: None)
  Receive Date: 20100701
  Receipt Date: 20091109
  Transmission Date: 20110219
  Serious: No
  Sender: FDA-Public Use
  Company Number: US-TEVA-212708USA

PATIENT
  Sex: Female

DRUGS (4)
  1. AZILECT [Suspect]
     Indication: PARKINSON'S DISEASE
     Route: 048
     Dates: start: 20090722
  2. GLIPIZIDE [Concomitant]
     Indication: DIABETES MELLITUS
     Route: 048
  3. DYAZIDE [Concomitant]
     Indication: OEDEMA PERIPHERAL
     Route: 048
  4. ISOPRENALINE HYDROCHLORIDE [Concomitant]
     Indication: CARDIAC DISORDER
     Route: 048

REACTIONS (1)
  - ALOPECIA [None]
